FAERS Safety Report 14962322 (Version 1)
Quarter: 2018Q2

REPORT INFORMATION
  Report Type: Spontaneous
  Country: TW (occurrence: TW)
  Receive Date: 20180601
  Receipt Date: 20180601
  Transmission Date: 20180711
  Serious: Yes (Hospitalization)
  Sender: FDA-Public Use
  Company Number: TW-BAYER-2018-100193

PATIENT
  Age: 60 Year
  Sex: Male

DRUGS (1)
  1. GADOVIST [Suspect]
     Active Substance: GADOBUTROL
     Dosage: 13 ML, ONCE
     Dates: start: 20180517, end: 20180517

REACTIONS (5)
  - Aphasia [None]
  - Oropharyngeal pain [None]
  - Throat irritation [None]
  - Pharyngeal oedema [None]
  - Rash [None]

NARRATIVE: CASE EVENT DATE: 20180517
